FAERS Safety Report 14546008 (Version 1)
Quarter: 2018Q1

REPORT INFORMATION
  Report Type: Report from Study
  Country: GB (occurrence: GB)
  Receive Date: 20180219
  Receipt Date: 20180219
  Transmission Date: 20180509
  Serious: Yes (Other)
  Sender: FDA-Public Use
  Company Number: GB-ROCHE-1227069

PATIENT

DRUGS (3)
  1. CAPECITABINE. [Suspect]
     Active Substance: CAPECITABINE
     Indication: GASTROOESOPHAGEAL CANCER
     Route: 048
  2. AMG 386 [Suspect]
     Active Substance: TREBANANIB
     Indication: GASTROOESOPHAGEAL CANCER
     Dosage: ARM A: 10 MG/KG AND ARM B: 3 MG/KG
     Route: 042
  3. CISPLATIN. [Suspect]
     Active Substance: CISPLATIN
     Indication: GASTROOESOPHAGEAL CANCER
     Route: 042

REACTIONS (31)
  - Gastrointestinal perforation [Unknown]
  - Constipation [Unknown]
  - Weight decreased [Unknown]
  - Haemorrhage [Unknown]
  - Ascites [Unknown]
  - Jejunal perforation [Unknown]
  - Dehydration [Unknown]
  - Dyspnoea [Unknown]
  - Vomiting [Unknown]
  - Abdominal pain [Unknown]
  - Pleural effusion [Unknown]
  - Asthenia [Unknown]
  - Embolism venous [Unknown]
  - Oedema peripheral [Unknown]
  - Neutropenia [Unknown]
  - Decreased appetite [Unknown]
  - Palmar-plantar erythrodysaesthesia syndrome [Unknown]
  - Hypomagnesaemia [Unknown]
  - Diarrhoea [Unknown]
  - Pulmonary embolism [Unknown]
  - Impaired healing [Unknown]
  - Hypertension [Unknown]
  - Anaemia [Unknown]
  - Nausea [Unknown]
  - Fatigue [Unknown]
  - Mucosal inflammation [Unknown]
  - Pyrexia [Unknown]
  - Embolism arterial [Unknown]
  - Abdominal pain upper [Unknown]
  - Hypokalaemia [Unknown]
  - Proteinuria [Unknown]
